FAERS Safety Report 7985208-0 (Version None)
Quarter: 2011Q4

REPORT INFORMATION
  Report Type: 
  Country: None (occurrence: None)
  Receive Date: 20111213
  Receipt Date: 20111205
  Transmission Date: 20120403
  Serious: Yes (Death)
  Sender: FDA-Public Use
  Company Number: DSA_47763_2011

PATIENT
  Sex: Male

DRUGS (1)
  1. XENAZINE [Suspect]
     Indication: CHOREA
     Dosage: (100 MG BID ORAL)
     Route: 048
     Dates: start: 20110720

REACTIONS (2)
  - HUNTINGTON'S DISEASE [None]
  - DISEASE COMPLICATION [None]
